FAERS Safety Report 5143562-1 (Version None)
Quarter: 2006Q4

REPORT INFORMATION
  Report Type: 
  Country: None (occurrence: None)
  Receive Date: 20061030
  Receipt Date: 20061013
  Transmission Date: 20070319
  Serious: Yes (Hospitalization)
  Sender: FDA-Public Use
  Company Number: 2006BI011634

PATIENT
  Age: 31 Year
  Sex: Male
  Weight: 92.5338 kg

DRUGS (3)
  1. AVONEX [Suspect]
     Indication: MULTIPLE SCLEROSIS
     Dosage: 30 UG; QW; IM
     Route: 030
     Dates: start: 20020101, end: 20060801
  2. ZOLOFT [Concomitant]
  3. CELLCEPT [Concomitant]

REACTIONS (8)
  - BALANCE DISORDER [None]
  - DISEASE PROGRESSION [None]
  - ESCHERICHIA INFECTION [None]
  - FALL [None]
  - MOVEMENT DISORDER [None]
  - MUSCULOSKELETAL STIFFNESS [None]
  - URINARY RETENTION [None]
  - URINARY TRACT INFECTION [None]
